FAERS Safety Report 7844053-7 (Version None)
Quarter: 2011Q4

REPORT INFORMATION
  Report Type: 
  Country: None (occurrence: None)
  Receive Date: 20111025
  Receipt Date: 20111019
  Transmission Date: 20120403
  Serious: Yes (Other)
  Sender: FDA-Public Use
  Company Number: US-ELI_LILLY_AND_COMPANY-US201110005294

PATIENT
  Sex: Male

DRUGS (1)
  1. EFFIENT [Suspect]
     Indication: PERCUTANEOUS CORONARY INTERVENTION
     Dosage: 10 MG, QD

REACTIONS (1)
  - PERCUTANEOUS CORONARY INTERVENTION [None]
